APPROVED DRUG PRODUCT: STIE-CORT
Active Ingredient: HYDROCORTISONE
Strength: 1%
Dosage Form/Route: LOTION;TOPICAL
Application: A089066 | Product #001
Applicant: PADAGIS US LLC
Approved: Nov 25, 1985 | RLD: No | RS: No | Type: DISCN